FAERS Safety Report 18149513 (Version 1)
Quarter: 2020Q3

REPORT INFORMATION
  Report Type: Spontaneous
  Country: US (occurrence: US)
  Receive Date: 20200813
  Receipt Date: 20200813
  Transmission Date: 20201103
  Serious: Yes (Other)
  Sender: FDA-Public Use
  Company Number: None

PATIENT
  Age: 51 Year
  Sex: Female
  Weight: 70.65 kg

DRUGS (2)
  1. GINKO BILOBA [Concomitant]
     Active Substance: GINKGO
  2. BLUMEN CLEAR ADVANCED HAND SANITIZER [Suspect]
     Active Substance: ALCOHOL
     Indication: INFECTION PROPHYLAXIS
     Dosage: ?          OTHER FREQUENCY:4?5 TIMES A DAY;?
     Route: 061

REACTIONS (2)
  - Vision blurred [None]
  - Pruritus [None]

NARRATIVE: CASE EVENT DATE: 20200702
